FAERS Safety Report 4414076-9 (Version None)
Quarter: 2004Q3

REPORT INFORMATION
  Report Type: 
  Country: None (occurrence: None)
  Receive Date: 20040803
  Receipt Date: 20040726
  Transmission Date: 20050211
  Serious: Yes (Hospitalization)
  Sender: FDA-Public Use
  Company Number: 200412834FR

PATIENT
  Age: 43 Year
  Sex: Female

DRUGS (6)
  1. HEMI-DAONIL [Suspect]
     Route: 048
     Dates: end: 20040501
  2. TENORDATE [Suspect]
     Route: 048
     Dates: end: 20040501
  3. COVERSYL [Suspect]
     Route: 048
     Dates: end: 20040501
  4. METFORMIN HCL [Suspect]
     Route: 048
     Dates: end: 20040501
  5. NEURONTIN [Concomitant]
     Dates: start: 20040302, end: 20040501
  6. KLIPAL [Concomitant]
     Dates: start: 20040328, end: 20040501

REACTIONS (4)
  - CARDIAC ARREST [None]
  - PANCREATITIS ACUTE [None]
  - PANCREATITIS HAEMORRHAGIC [None]
  - PANCREATITIS NECROTISING [None]
